FAERS Safety Report 14929688 (Version 2)
Quarter: 2018Q2

REPORT INFORMATION
  Report Type: Spontaneous
  Country: JP (occurrence: JP)
  Receive Date: 20180523
  Receipt Date: 20180622
  Transmission Date: 20180711
  Serious: Yes (Other)
  Sender: FDA-Public Use
  Company Number: PHJP2018JP010832

PATIENT
  Sex: Male
  Weight: 60 kg

DRUGS (17)
  1. ROTIGOTINE [Concomitant]
     Active Substance: ROTIGOTINE
     Dosage: UNK
     Route: 065
  2. CARBIDOPA AND LEVODOPA [Concomitant]
     Active Substance: CARBIDOPA\LEVODOPA
     Dosage: 300 MG, UNK
     Route: 065
  3. CARBIDOPA AND LEVODOPA [Concomitant]
     Active Substance: CARBIDOPA\LEVODOPA
     Dosage: 400 MG, UNK
     Route: 065
  4. ROTIGOTINE [Concomitant]
     Active Substance: ROTIGOTINE
     Dosage: 31.5 MG, AT 10 PM
     Route: 065
  5. COMTAN [Suspect]
     Active Substance: ENTACAPONE
     Dosage: 800 MG, QD
     Route: 048
  6. SELEGILINE [Concomitant]
     Active Substance: SELEGILINE
     Dosage: 2.5 MG, BID
     Route: 065
  7. SELEGILINE [Concomitant]
     Active Substance: SELEGILINE
     Dosage: UNK
     Route: 065
  8. ROTIGOTINE [Concomitant]
     Active Substance: ROTIGOTINE
     Dosage: UNK
     Route: 065
  9. COMTAN [Suspect]
     Active Substance: ENTACAPONE
     Dosage: 400 MG, QD
     Route: 048
  10. COMTAN [Suspect]
     Active Substance: ENTACAPONE
     Dosage: 200 MG, 5QD
     Route: 048
  11. CARBIDOPA AND LEVODOPA [Concomitant]
     Active Substance: CARBIDOPA\LEVODOPA
     Indication: PARKINSON^S DISEASE
     Dosage: UNK
     Route: 065
  12. SELEGILINE [Concomitant]
     Active Substance: SELEGILINE
     Dosage: 2.5 MG, BID
     Route: 065
  13. ROTIGOTINE [Concomitant]
     Active Substance: ROTIGOTINE
     Dosage: 18 MG, UNK
     Route: 065
  14. CARBIDOPA AND LEVODOPA [Concomitant]
     Active Substance: CARBIDOPA\LEVODOPA
     Dosage: 100 MG, 5QD
     Route: 065
  15. ROTIGOTINE [Concomitant]
     Active Substance: ROTIGOTINE
     Indication: PARKINSON^S DISEASE
     Dosage: 4.5 MG, UNK
     Route: 065
  16. COMTAN [Suspect]
     Active Substance: ENTACAPONE
     Indication: PARKINSON^S DISEASE
     Dosage: UNK
     Route: 048
  17. SELEGILINE [Concomitant]
     Active Substance: SELEGILINE
     Indication: PARKINSON^S DISEASE
     Dosage: 2.5 MG, UNK
     Route: 065

REACTIONS (2)
  - Parkinson^s disease [Recovering/Resolving]
  - Therapeutic response shortened [Recovering/Resolving]
